FAERS Safety Report 8737797 (Version 2)
Quarter: 2013Q4

REPORT INFORMATION
  Report Type: Spontaneous
  Country: US (occurrence: US)
  Receive Date: 20120822
  Receipt Date: 20131105
  Transmission Date: 20140711
  Serious: Yes (Other)
  Sender: FDA-Public Use
  Company Number: US-009507513-1207USA010970

PATIENT
  Sex: Female

DRUGS (6)
  1. ZOCOR [Suspect]
     Route: 048
  2. DIAZEPAM [Suspect]
  3. BUPROPION HYDROCHLORIDE [Suspect]
  4. GABAPENTIN [Suspect]
  5. REBIF [Suspect]
  6. AMPYRA [Suspect]

REACTIONS (6)
  - Convulsion [Unknown]
  - Eye movement disorder [Unknown]
  - Urinary incontinence [Unknown]
  - Motor dysfunction [Unknown]
  - Suicidal ideation [Unknown]
  - Mental disorder [Unknown]
